FAERS Safety Report 15279310 (Version 1)
Quarter: 2018Q4

REPORT INFORMATION
  Report Type: Spontaneous
  Country: FR (occurrence: FR)
  Receive Date: 20180815
  Receipt Date: 20180815
  Transmission Date: 20190204
  Serious: Yes (Hospitalization)
  Sender: FDA-Public Use
  Company Number: FR-TEVA-2018-FR-940789

PATIENT
  Age: 20 Year
  Sex: Female

DRUGS (1)
  1. ANTADYS 100 MG, COMPRIM? PELLICUL? [Suspect]
     Active Substance: FLURBIPROFEN
     Indication: PAIN
     Dosage: 1 OR 2 CP / DAY
     Route: 048

REACTIONS (1)
  - Acute kidney injury [Recovered/Resolved]

NARRATIVE: CASE EVENT DATE: 20180611
